FAERS Safety Report 9516356 (Version 2)
Quarter: 2013Q3

REPORT INFORMATION
  Report Type: Spontaneous
  Country: US (occurrence: US)
  Receive Date: 20130911
  Receipt Date: 20130919
  Transmission Date: 20140515
  Serious: No
  Sender: FDA-Public Use
  Company Number: US-009507513-1308USA014181

PATIENT
  Sex: Female

DRUGS (1)
  1. DULERA [Suspect]
     Dosage: 200MCG/5MCG, 2 PUFFS, ONCE DAILY
     Route: 055
     Dates: start: 200808

REACTIONS (6)
  - Cough [Unknown]
  - Underdose [Unknown]
  - Inappropriate schedule of drug administration [Unknown]
  - Product quality issue [Unknown]
  - Product cleaning inadequate [Unknown]
  - Drug dose omission [Unknown]
